FAERS Safety Report 20535007 (Version 2)
Quarter: 2022Q1

REPORT INFORMATION
  Report Type: Other
  Country: CA (occurrence: CA)
  Receive Date: 20220302
  Receipt Date: 20220304
  Transmission Date: 20220423
  Serious: Yes (Other)
  Sender: FDA-Public Use
  Company Number: CA-002147023-PHHY2019CA187998

PATIENT
  Age: 40 Year
  Sex: Female

DRUGS (11)
  1. XOLAIR [Suspect]
     Active Substance: OMALIZUMAB
     Indication: Asthma
     Route: 058
     Dates: start: 20190808
  2. XOLAIR [Suspect]
     Active Substance: OMALIZUMAB
     Dosage: 300 MG EVERY 4 WEEKS (150 MG)
     Route: 058
     Dates: start: 20190808
  3. XOLAIR [Suspect]
     Active Substance: OMALIZUMAB
     Dosage: 300 MG EVERY 4 WEEKS
     Route: 058
     Dates: start: 20190909
  4. XOLAIR [Suspect]
     Active Substance: OMALIZUMAB
     Dosage: 375 MG
     Route: 058
     Dates: start: 20191106
  5. XOLAIR [Suspect]
     Active Substance: OMALIZUMAB
     Dosage: 375 MG EVERY 4 WEEKS
     Route: 058
     Dates: start: 20191209
  6. XOLAIR [Suspect]
     Active Substance: OMALIZUMAB
     Dosage: 375 MG EVERY 4 WEEKS
     Route: 058
     Dates: start: 20200330
  7. XOLAIR [Suspect]
     Active Substance: OMALIZUMAB
     Dosage: 375 MG EVERY 4 WEEKS
     Route: 058
     Dates: start: 20200902
  8. XOLAIR [Suspect]
     Active Substance: OMALIZUMAB
     Route: 058
  9. XOLAIR [Suspect]
     Active Substance: OMALIZUMAB
     Dosage: 300 MG, EVERY 4 WEEKS
     Route: 058
  10. BREO ELLIPTA [Concomitant]
     Active Substance: FLUTICASONE FUROATE\VILANTEROL TRIFENATATE
     Indication: Product used for unknown indication
     Route: 055
     Dates: start: 20190315
  11. VENTOLIN [Concomitant]
     Active Substance: ALBUTEROL SULFATE
     Indication: Product used for unknown indication
     Dosage: 2 DF, OTHER
     Route: 055
     Dates: start: 20190315

REACTIONS (15)
  - Chest wall abscess [Unknown]
  - Lung abscess [Unknown]
  - Hypersensitivity [Unknown]
  - Hypoacusis [Unknown]
  - Discomfort [Unknown]
  - Emotional distress [Unknown]
  - Chest discomfort [Unknown]
  - Frustration tolerance decreased [Unknown]
  - Anxiety [Unknown]
  - Middle insomnia [Unknown]
  - Pleural disorder [Unknown]
  - Asthma [Unknown]
  - Wrong technique in product usage process [Unknown]
  - Off label use [Unknown]
  - Incorrect dose administered [Unknown]

NARRATIVE: CASE EVENT DATE: 20190808
